FAERS Safety Report 13940474 (Version 1)
Quarter: 2017Q3

REPORT INFORMATION
  Report Type: Spontaneous
  Country: US (occurrence: US)
  Receive Date: 20170906
  Receipt Date: 20170906
  Transmission Date: 20171127
  Serious: No
  Sender: FDA-Public Use
  Company Number: US-BAYER-2017-164241

PATIENT
  Age: 69 Year
  Sex: Female
  Weight: 77 kg

DRUGS (9)
  1. MIRALAX [Suspect]
     Active Substance: POLYETHYLENE GLYCOL 3350
     Indication: GASTROINTESTINAL DISORDER
     Dosage: 1 DF, QD (FULL CAP)
     Route: 048
     Dates: end: 20170823
  2. MIRALAX [Suspect]
     Active Substance: POLYETHYLENE GLYCOL 3350
     Indication: GASTROINTESTINAL DISORDER
     Dosage: 0.5 DF, UNK ((HALF CAP))
     Route: 048
  3. CALCIUM [Concomitant]
     Active Substance: CALCIUM
  4. LINUM USITATISSIMUM [Concomitant]
  5. MIRALAX [Suspect]
     Active Substance: POLYETHYLENE GLYCOL 3350
     Indication: GASTROINTESTINAL DISORDER
     Dosage: 1 DF, QD (FULL CAP)
     Route: 048
     Dates: start: 2017
  6. ONE A DAY WOMEN^S [Concomitant]
     Active Substance: MINERALS\VITAMINS
     Dosage: UNK
  7. FISH OIL [Concomitant]
     Active Substance: FISH OIL
  8. BIOTIN [Concomitant]
     Active Substance: BIOTIN
  9. GAS RELIEF [Concomitant]
     Active Substance: DIMETHICONE

REACTIONS (8)
  - Inappropriate prescribing [Unknown]
  - Therapeutic response unexpected [Unknown]
  - Flatulence [Unknown]
  - Product use issue [Unknown]
  - Underdose [Unknown]
  - Faeces hard [Unknown]
  - Circumstance or information capable of leading to medication error [Unknown]
  - Abdominal distension [Unknown]
